FAERS Safety Report 12082829 (Version 1)
Quarter: 2016Q1

REPORT INFORMATION
  Report Type: Spontaneous
  Country: US (occurrence: None)
  Receive Date: 20160216
  Receipt Date: 20160216
  Transmission Date: 20160526
  Serious: No
  Sender: FDA-Public Use
  Company Number: None

PATIENT
  Age: 65 Year
  Sex: Female

DRUGS (3)
  1. DILAUDID [Suspect]
     Active Substance: HYDROMORPHONE HYDROCHLORIDE
     Indication: BACK PAIN
     Dosage: 1 PILL
     Route: 048
     Dates: start: 20160212
  2. MULTIVITAMIN/MINERAL [Concomitant]
  3. CALCIUM WITH VITAMIN D [Concomitant]
     Active Substance: CALCIUM\VITAMIN D

REACTIONS (4)
  - Product quality issue [None]
  - Drug withdrawal syndrome [None]
  - Drug ineffective [None]
  - Product measured potency issue [None]

NARRATIVE: CASE EVENT DATE: 20160213
